FAERS Safety Report 16047539 (Version 16)
Quarter: 2025Q1

REPORT INFORMATION
  Report Type: Report from Study
  Country: DE (occurrence: DE)
  Receive Date: 20190307
  Receipt Date: 20250227
  Transmission Date: 20250409
  Serious: Yes (Hospitalization, Other)
  Sender: BRISTOL-MYERS SQUIBB COMPANY
  Company Number: DE-BRISTOL-MYERS SQUIBB COMPANY-BMS-2017-086642

PATIENT
  Age: 62 Year
  Sex: Female

DRUGS (25)
  1. OPDIVO [Suspect]
     Active Substance: NIVOLUMAB
     Indication: Malignant melanoma
     Dosage: 255MG, Q3WK
     Route: 042
     Dates: start: 20170727, end: 20170907
  2. OPDIVO [Suspect]
     Active Substance: NIVOLUMAB
     Dosage: 255MG, Q3WK
     Route: 042
     Dates: start: 20170727, end: 20170907
  3. OPDIVO [Suspect]
     Active Substance: NIVOLUMAB
     Dosage: 255MG, Q3WK
     Route: 042
     Dates: start: 20170727, end: 20170907
  4. OPDIVO [Suspect]
     Active Substance: NIVOLUMAB
     Dosage: 255MG, Q3WK
     Route: 042
     Dates: start: 20170727, end: 20170907
  5. OPDIVO [Suspect]
     Active Substance: NIVOLUMAB
     Route: 042
     Dates: start: 20170727, end: 20181219
  6. OPDIVO [Suspect]
     Active Substance: NIVOLUMAB
     Route: 042
     Dates: end: 20181219
  7. OPDIVO [Suspect]
     Active Substance: NIVOLUMAB
     Route: 042
     Dates: start: 20170727, end: 20190819
  8. OPDIVO [Suspect]
     Active Substance: NIVOLUMAB
     Dosage: 480MG, Q4W
     Route: 042
     Dates: start: 20171019, end: 20181210
  9. OPDIVO [Suspect]
     Active Substance: NIVOLUMAB
     Dosage: 480MG, Q4W
     Route: 042
     Dates: start: 20171019, end: 20181210
  10. OPDIVO [Suspect]
     Active Substance: NIVOLUMAB
     Dosage: 480MG, Q4W
     Route: 042
     Dates: start: 20171019, end: 20181210
  11. OPDIVO [Suspect]
     Active Substance: NIVOLUMAB
     Route: 042
     Dates: start: 20170727
  12. OPDIVO [Suspect]
     Active Substance: NIVOLUMAB
     Route: 042
     Dates: start: 20170727
  13. YERVOY [Suspect]
     Active Substance: IPILIMUMAB
     Indication: Malignant melanoma
     Dosage: 85MG, Q3W
     Route: 042
     Dates: start: 20170727, end: 20170907
  14. YERVOY [Suspect]
     Active Substance: IPILIMUMAB
     Dosage: 85MG, Q3W
     Route: 042
     Dates: start: 20170727
  15. YERVOY [Suspect]
     Active Substance: IPILIMUMAB
     Dosage: 85MG, Q3W
     Route: 042
     Dates: start: 20170727
  16. YERVOY [Suspect]
     Active Substance: IPILIMUMAB
     Route: 042
     Dates: start: 20170727, end: 20170907
  17. RANITIDINE HYDROCHLORIDE [Concomitant]
     Active Substance: RANITIDINE HYDROCHLORIDE
     Indication: Product used for unknown indication
  18. LEVOTHYROXINE SODIUM [Concomitant]
     Active Substance: LEVOTHYROXINE SODIUM
     Indication: Product used for unknown indication
  19. LEVETIRACETAM [Concomitant]
     Active Substance: LEVETIRACETAM
     Indication: Product used for unknown indication
  20. MIRTAZAPINE [Concomitant]
     Active Substance: MIRTAZAPINE
     Indication: Product used for unknown indication
  21. METOCLOPRAMIDE [Concomitant]
     Active Substance: METOCLOPRAMIDE
     Indication: Product used for unknown indication
  22. CITALOPRAM HYDROBROMIDE [Concomitant]
     Active Substance: CITALOPRAM HYDROBROMIDE
     Indication: Product used for unknown indication
  23. GLYCERIN [Concomitant]
     Active Substance: GLYCERIN
     Indication: Product used for unknown indication
  24. LOPERAMIDE HYDROCHLORIDE [Concomitant]
     Active Substance: LOPERAMIDE HYDROCHLORIDE
     Indication: Product used for unknown indication
  25. HYDROCORTISONE [Concomitant]
     Active Substance: HYDROCORTISONE
     Indication: Product used for unknown indication

REACTIONS (17)
  - Colitis [Recovered/Resolved]
  - Pulmonary embolism [Recovered/Resolved]
  - Paraesthesia [Recovered/Resolved]
  - Depression [Recovered/Resolved]
  - Hyponatraemia [Recovered/Resolved]
  - Oral dysaesthesia [Recovered/Resolved]
  - Rash pruritic [Recovered/Resolved]
  - Gastrointestinal infection [Recovered/Resolved]
  - Conjunctivitis [Recovered/Resolved]
  - Nausea [Recovered/Resolved]
  - Otitis externa [Recovered/Resolved]
  - Fatigue [Recovered/Resolved]
  - Alopecia [Recovered/Resolved]
  - Arthralgia [Recovered/Resolved]
  - Decreased appetite [Unknown]
  - Liver function test increased [Unknown]
  - Off label use [Unknown]

NARRATIVE: CASE EVENT DATE: 20170817
